FAERS Safety Report 4309600-0 (Version None)
Quarter: 2004Q1

REPORT INFORMATION
  Report Type: 
  Country: None (occurrence: None)
  Receive Date: 20040301
  Receipt Date: 20040225
  Transmission Date: 20041129
  Serious: Yes (Hospitalization)
  Sender: FDA-Public Use
  Company Number: 200402497

PATIENT
  Sex: Female

DRUGS (3)
  1. EXTRA STRENGTH TYLENOL GELTABS [Suspect]
     Indication: HEADACHE
     Dosage: 500-1000 MG PRN PO
     Route: 048
     Dates: start: 20030901
  2. EXTRA STRENGTH TYLENOL GELTABS [Suspect]
     Indication: PAIN
     Dosage: 500-1000 MG PRN PO
     Route: 048
     Dates: start: 20030901
  3. IMODIUM A-D [Suspect]
     Indication: DIARRHOEA
     Dosage: 2-6 MG DAILY PRN PRN PO
     Route: 048
     Dates: start: 20031201, end: 20031201

REACTIONS (1)
  - DIARRHOEA [None]
